FAERS Safety Report 23326650 (Version 3)
Quarter: 2024Q1

REPORT INFORMATION
  Report Type: Spontaneous
  Country: US (occurrence: US)
  Receive Date: 20231221
  Receipt Date: 20240124
  Transmission Date: 20240410
  Serious: No
  Sender: FDA-Public Use
  Company Number: US-PFIZER INC-PV202300138598

PATIENT
  Age: 50 Year
  Sex: Male

DRUGS (2)
  1. INLYTA [Suspect]
     Active Substance: AXITINIB
     Indication: Renal cancer
     Dosage: TAKE 1 TABLET (5 MG) BY MOUTH TWICE DAILY MONDAY-FRIDAY; OFF ON SATURDAY AND SUNDAY
     Route: 048
  2. INLYTA [Suspect]
     Active Substance: AXITINIB
     Dosage: TAKE #3 BY MOUTH TWICE DAILY, M-F; (3 MG DOSAGE TWICE DAILY, M-F)
     Route: 048

REACTIONS (2)
  - Off label use [Unknown]
  - Weight decreased [Unknown]
